FAERS Safety Report 5526088-2 (Version None)
Quarter: 2007Q4

REPORT INFORMATION
  Report Type: 
  Country: None (occurrence: None)
  Receive Date: 20071126
  Receipt Date: 20071114
  Transmission Date: 20080405
  Serious: Yes (Hospitalization)
  Sender: FDA-Public Use
  Company Number: FR-GILEAD-2006-0010022

PATIENT
  Sex: Male

DRUGS (12)
  1. TRUVADA [Suspect]
     Indication: HIV INFECTION
     Route: 048
     Dates: start: 20060630, end: 20060802
  2. SUSTIVA [Suspect]
     Indication: HIV INFECTION
     Route: 048
     Dates: start: 20060630, end: 20060727
  3. MORPHINE [Suspect]
     Indication: PAIN
     Dates: start: 20060707, end: 20060725
  4. MORPHINE [Suspect]
     Indication: DIARRHOEA
     Dates: start: 20060726, end: 20060727
  5. KALETRA [Concomitant]
     Indication: HIV INFECTION
     Route: 048
     Dates: start: 20060728
  6. COMBIVIR [Concomitant]
     Indication: HIV INFECTION
     Dates: start: 20060802, end: 20060828
  7. RIMIFON [Concomitant]
     Indication: TUBERCULOSIS
     Route: 048
     Dates: start: 20050512
  8. PIRILENE [Concomitant]
     Indication: TUBERCULOSIS
     Route: 048
     Dates: start: 20050512
  9. RIFATER [Concomitant]
     Indication: TUBERCULOSIS
     Route: 048
     Dates: start: 20060512, end: 20060727
  10. MOXIFLOXACIN HCL [Concomitant]
     Dates: start: 20070729
  11. BACTRIM [Concomitant]
     Indication: ANTIFUNGAL PROPHYLAXIS
     Dates: start: 20060511
  12. ROVALCYTE [Concomitant]
     Indication: CYTOMEGALOVIRUS INFECTION
     Dates: start: 20060512, end: 20060821

REACTIONS (8)
  - CONFUSIONAL STATE [None]
  - ENCEPHALITIS [None]
  - HALLUCINATION, AUDITORY [None]
  - HALLUCINATION, VISUAL [None]
  - HYPOMAGNESAEMIA [None]
  - PANCYTOPENIA [None]
  - PROTEINURIA [None]
  - RENAL FAILURE [None]
